FAERS Safety Report 15198188 (Version 2)
Quarter: 2018Q3

REPORT INFORMATION
  Report Type: Spontaneous
  Country: DE (occurrence: DE)
  Receive Date: 20180725
  Receipt Date: 20180821
  Transmission Date: 20181010
  Serious: Yes (Hospitalization, Other)
  Sender: FDA-Public Use
  Company Number: PHHY2014DE185213

PATIENT
  Age: 47 Year
  Sex: Female
  Weight: 59.6 kg

DRUGS (35)
  1. ROXITHROMYCIN [Concomitant]
     Active Substance: ROXITHROMYCIN
     Indication: FEBRILE INFECTION
     Route: 065
  2. FOLINIC ACID [Concomitant]
     Active Substance: LEUCOVORIN
     Dosage: 162 MG, UNK
     Route: 065
  3. 5 FLUOROURACIL [Concomitant]
     Active Substance: FLUOROURACIL
     Dosage: 5376 MG, UNK
     Route: 041
  4. PIPERACILLIN/TAZOBACTAM [Concomitant]
     Active Substance: PIPERACILLIN SODIUM\TAZOBACTAM SODIUM
     Indication: FEBRILE INFECTION
     Dosage: UNK
     Route: 065
  5. FOLINIC ACID [Concomitant]
     Active Substance: LEUCOVORIN
     Dosage: 324 MG, UNK
     Route: 065
  6. FOLINIC ACID [Concomitant]
     Active Substance: LEUCOVORIN
     Dosage: 324 MG, UNK
     Route: 065
     Dates: start: 20131125, end: 20140414
  7. BROMAZANIL [Concomitant]
     Active Substance: BROMAZEPAM
     Indication: SLEEP DISORDER
     Dosage: UNK
     Route: 065
  8. ACIC [Concomitant]
     Active Substance: ACYCLOVIR
     Indication: ORAL HERPES
     Dosage: 400 MG, UNK
     Route: 065
  9. OXALIPLATIN. [Suspect]
     Active Substance: OXALIPLATIN
     Dosage: 137.7 MG, UNK
     Route: 065
     Dates: start: 20140102, end: 20140102
  10. IRINOTECAN [Suspect]
     Active Substance: IRINOTECAN
     Indication: COLORECTAL CANCER
     Dosage: 103.27 MG, UNK
     Route: 065
     Dates: start: 20140728, end: 20140728
  11. BEVACIZUMAB. [Suspect]
     Active Substance: BEVACIZUMAB
     Indication: COLORECTAL CANCER METASTATIC
     Dosage: 298 MG, UNK
     Route: 042
     Dates: start: 20131108, end: 20131108
  12. FOLINIC ACID [Concomitant]
     Active Substance: LEUCOVORIN
     Dosage: 336 MG, UNK
     Route: 065
  13. 5 FLUOROURACIL [Concomitant]
     Active Substance: FLUOROURACIL
     Dosage: 5184 MG, UNK
     Route: 041
  14. 5 FLUOROURACIL [Concomitant]
     Active Substance: FLUOROURACIL
     Dosage: 3888 MG, UNK
     Route: 041
  15. TRAMAL LONG [Concomitant]
     Active Substance: TRAMADOL
     Indication: PROCEDURAL PAIN
     Dosage: UNK
     Route: 065
  16. BERODUAL [Concomitant]
     Active Substance: FENOTEROL HYDROBROMIDE\IPRATROPIUM BROMIDE
     Indication: PNEUMONITIS
     Dosage: UNK
     Route: 065
  17. 5 FLUOROURACIL [Concomitant]
     Active Substance: FLUOROURACIL
     Indication: PRODUCT USED FOR UNKNOWN INDICATION
     Dosage: 2592 MG, UNK
     Route: 041
  18. NOVALGIN (METAMIZOLE SODIUM) [Concomitant]
     Active Substance: METAMIZOLE SODIUM
     Indication: PROCEDURAL PAIN
     Dosage: UNK
     Route: 065
  19. RAMIPRIL. [Concomitant]
     Active Substance: RAMIPRIL
     Indication: HYPERTENSION
     Dosage: 5 MG, UNK
     Route: 065
  20. OXALIPLATIN. [Suspect]
     Active Substance: OXALIPLATIN
     Indication: COLORECTAL CANCER
     Dosage: 142.8 MG, UNK (LAST DOSE PRIOR TO SENSORY POLYNEUROPATHY (137.7 MG))
     Route: 065
     Dates: start: 20140728
  21. IRINOTECAN [Suspect]
     Active Substance: IRINOTECAN
     Dosage: 277.2 MG, UNK
     Route: 065
     Dates: start: 20131108
  22. FOLINIC ACID [Concomitant]
     Active Substance: LEUCOVORIN
     Dosage: 336 MG, UNK
     Dates: start: 20131108, end: 20131108
  23. DIPIDOLOR [Concomitant]
     Active Substance: PIRITRAMIDE
     Indication: PROCEDURAL PAIN
     Dosage: UNK
     Route: 065
  24. LEVOFLOXACIN. [Concomitant]
     Active Substance: LEVOFLOXACIN
     Indication: PYREXIA
     Dosage: UNK
     Route: 065
  25. TAVOR [Concomitant]
     Indication: DEPRESSED MOOD
     Dosage: UNK
     Route: 065
  26. CLEXANE [Concomitant]
     Active Substance: ENOXAPARIN SODIUM
     Indication: THROMBOSIS PROPHYLAXIS
     Dosage: UNK
     Route: 065
  27. OXALIPLATIN. [Suspect]
     Active Substance: OXALIPLATIN
     Dosage: 137.7 MG, UNK
     Route: 065
     Dates: start: 20131108
  28. ERYTHROCYTES [Concomitant]
     Active Substance: HUMAN RED BLOOD CELL
     Indication: SURGERY
     Route: 065
  29. BISOPROLOL [Concomitant]
     Active Substance: BISOPROLOL
     Indication: HYPERTENSION
     Dosage: 2.5 MG, UNK
     Route: 065
  30. TARGIN [Concomitant]
     Active Substance: NALOXONE HYDROCHLORIDE\OXYCODONE HYDROCHLORIDE
     Indication: PROCEDURAL PAIN
     Route: 065
  31. BEVACIZUMAB. [Suspect]
     Active Substance: BEVACIZUMAB
     Dosage: 275 MG, UNK
     Route: 042
     Dates: start: 20140102
  32. FOLINIC ACID [Concomitant]
     Active Substance: LEUCOVORIN
     Indication: COLORECTAL CANCER
     Dosage: 243 MG, UNK
     Route: 065
  33. BISOPROLOL [Concomitant]
     Active Substance: BISOPROLOL
     Dosage: 5 MG, UNK
     Route: 065
  34. BEVACIZUMAB. [Suspect]
     Active Substance: BEVACIZUMAB
     Dosage: 275 MG, UNK
     Route: 042
     Dates: start: 20140825
  35. PANTOZLE [Concomitant]
     Indication: PRODUCT USED FOR UNKNOWN INDICATION
     Dosage: UNK
     Route: 065

REACTIONS (5)
  - Peripheral sensory neuropathy [Recovered/Resolved]
  - Infection [Recovered/Resolved]
  - Pyrexia [Recovered/Resolved]
  - Hepatitis toxic [Recovering/Resolving]
  - Pleural effusion [Not Recovered/Not Resolved]

NARRATIVE: CASE EVENT DATE: 20140102
